FAERS Safety Report 20428425 (Version 2)
Quarter: 2022Q1

REPORT INFORMATION
  Report Type: Spontaneous
  Country: JP (occurrence: JP)
  Receive Date: 20220204
  Receipt Date: 20220308
  Transmission Date: 20220423
  Serious: No
  Sender: FDA-Public Use
  Company Number: JP-GSKNCCC-Case-01407518_AE-54230

PATIENT
  Age: 81 Year
  Sex: Female

DRUGS (1)
  1. SOTROVIMAB [Suspect]
     Active Substance: SOTROVIMAB
     Dosage: 500 MG, SINGLE
     Dates: start: 20220126, end: 20220126

REACTIONS (2)
  - Rash [Recovered/Resolved]
  - Infusion related reaction [Recovered/Resolved]
